FAERS Safety Report 19925175 (Version 1)
Quarter: 2021Q4

REPORT INFORMATION
  Report Type: Spontaneous
  Country: US (occurrence: US)
  Receive Date: 20211006
  Receipt Date: 20211006
  Transmission Date: 20220303
  Serious: Yes (Other)
  Sender: FDA-Public Use
  Company Number: US-INCYTE CORPORATION-2021IN009066

PATIENT

DRUGS (1)
  1. JAKAFI [Suspect]
     Active Substance: RUXOLITINIB
     Indication: Graft versus host disease
     Dosage: TAKE 1 TABLET (5 MG TOTAL) BY MOUTHT WICE DAILY FOR 30 DAYS( AVOID GRAPEFRUIT)
     Route: 065
     Dates: start: 20210225

REACTIONS (2)
  - Graft versus host disease [Not Recovered/Not Resolved]
  - Product dose omission issue [Not Recovered/Not Resolved]
